FAERS Safety Report 16928380 (Version 2)
Quarter: 2019Q4

REPORT INFORMATION
  Report Type: Spontaneous
  Country: US (occurrence: US)
  Receive Date: 20191017
  Receipt Date: 20191112
  Transmission Date: 20200122
  Serious: Yes (Hospitalization, Other)
  Sender: FDA-Public Use
  Company Number: US-GLAXOSMITHKLINE-US2019186001

PATIENT
  Age: 52 Year
  Sex: Male
  Weight: 121 kg

DRUGS (2)
  1. LAMOTRIGINE. [Suspect]
     Active Substance: LAMOTRIGINE
     Indication: SEIZURE
     Dosage: 400 AT BED TIME AND 350 MG EVERY MORNING
     Route: 048
  2. LAMOTRIGINE. [Suspect]
     Active Substance: LAMOTRIGINE
     Indication: AURA
     Dosage: 400 MG, BID
     Route: 048

REACTIONS (4)
  - Drug ineffective [Unknown]
  - Seizure [Recovered/Resolved]
  - Aura [Recovered/Resolved]
  - Product substitution issue [Unknown]

NARRATIVE: CASE EVENT DATE: 201810
